FAERS Safety Report 5987089-3 (Version None)
Quarter: 2008Q4

REPORT INFORMATION
  Report Type: 
  Country: None (occurrence: None)
  Receive Date: 20081209
  Receipt Date: 20081014
  Transmission Date: 20090506
  Serious: No
  Sender: FDA-Public Use
  Company Number: A0744476A

PATIENT
  Age: 59 Year
  Sex: Female

DRUGS (6)
  1. AVANDAMET [Suspect]
     Indication: BLOOD GLUCOSE ABNORMAL
     Dosage: 2TAB TWICE PER DAY
     Route: 048
     Dates: start: 19930101
  2. ALPRAZOLAM [Concomitant]
  3. VICODIN [Concomitant]
  4. BUSPIRONE HCL [Concomitant]
  5. PANTOPRAZOLE SODIUM [Concomitant]
  6. ZOMIG [Concomitant]

REACTIONS (4)
  - COELIAC DISEASE [None]
  - DIARRHOEA [None]
  - GASTROINTESTINAL PAIN [None]
  - NIGHT SWEATS [None]
